FAERS Safety Report 21841922 (Version 2)
Quarter: 2023Q2

REPORT INFORMATION
  Report Type: Spontaneous
  Country: JP (occurrence: JP)
  Receive Date: 20230110
  Receipt Date: 20230403
  Transmission Date: 20230721
  Serious: Yes (Other)
  Sender: FDA-Public Use
  Company Number: JP-ASTELLAS-2023JP000023

PATIENT
  Age: 9 Decade
  Sex: Female

DRUGS (1)
  1. VESICARE [Suspect]
     Active Substance: SOLIFENACIN SUCCINATE
     Indication: Hypertonic bladder
     Dosage: UNK UNK, ONCE DAILY (IN THE MORNING)
     Route: 048

REACTIONS (4)
  - Neoplasm malignant [Unknown]
  - Ascites [Unknown]
  - Hypoalbuminaemia [Unknown]
  - Oedema [Not Recovered/Not Resolved]
